FAERS Safety Report 7676613-0 (Version None)
Quarter: 2011Q3

REPORT INFORMATION
  Report Type: 
  Country: None (occurrence: None)
  Receive Date: 20110805
  Receipt Date: 20110721
  Transmission Date: 20111222
  Serious: Yes (Hospitalization)
  Sender: FDA-Public Use
  Company Number: 2011MA009255

PATIENT
  Age: 70 Year
  Sex: Female

DRUGS (3)
  1. ALPRAZOLAM [Suspect]
     Indication: MENTAL DISORDER
     Dosage: PRN
  2. MIRTAZAPINE [Suspect]
     Dosage: 30 MG;HS
  3. VENLAFAXINE HYDROCHLORIDE [Suspect]
     Indication: MENTAL DISORDER
     Dosage: 225 MG;QD

REACTIONS (15)
  - HEART RATE INCREASED [None]
  - FEAR [None]
  - VERTIGO [None]
  - BLOOD PRESSURE INCREASED [None]
  - DRUG INEFFECTIVE [None]
  - DRUG WITHDRAWAL SYNDROME [None]
  - HYPERHIDROSIS [None]
  - GAIT DISTURBANCE [None]
  - CEREBROVASCULAR ACCIDENT [None]
  - HOT FLUSH [None]
  - PALPITATIONS [None]
  - ASTHENIA [None]
  - NAUSEA [None]
  - TRANSIENT ISCHAEMIC ATTACK [None]
  - TREATMENT NONCOMPLIANCE [None]
